FAERS Safety Report 5730322-3 (Version None)
Quarter: 2008Q2

REPORT INFORMATION
  Report Type: 
  Country: None (occurrence: None)
  Receive Date: 20080430
  Receipt Date: 20080118
  Transmission Date: 20081010
  Serious: No
  Sender: FDA-Public Use
  Company Number: 2008PV033980

PATIENT
  Age: 62 Year
  Sex: Male

DRUGS (3)
  1. SYMLIN [Suspect]
     Indication: TYPE 2 DIABETES MELLITUS
     Dosage: 60 MCG;QD;SC
     Route: 058
     Dates: start: 20080117
  2. NOVOLOG MIX 70/30 [Concomitant]
  3. UNKNOWN (COULD NOT REMEMBER) ORAL MEDS FOR DIABETES [Concomitant]

REACTIONS (2)
  - DIZZINESS [None]
  - NAUSEA [None]
